FAERS Safety Report 22599979 (Version 1)
Quarter: 2023Q2

REPORT INFORMATION
  Report Type: Spontaneous
  Country: BR (occurrence: BR)
  Receive Date: 20230614
  Receipt Date: 20230614
  Transmission Date: 20230722
  Serious: Yes (Other)
  Sender: FDA-Public Use
  Company Number: BR-APIL-2315650US

PATIENT
  Sex: Female
  Weight: 68 kg

DRUGS (4)
  1. CARBOXYMETHYLCELLULOSE SODIUM\GLYCERIN [Suspect]
     Active Substance: CARBOXYMETHYLCELLULOSE SODIUM\GLYCERIN
     Indication: Uveitis
     Dosage: DOSE DESC: UNK
     Route: 047
  2. CARBOXYMETHYLCELLULOSE SODIUM\GLYCERIN [Suspect]
     Active Substance: CARBOXYMETHYLCELLULOSE SODIUM\GLYCERIN
     Indication: Eye disorder
     Dosage: TIME INTERVAL: 0.07142857 DAYS
     Route: 047
  3. PURAN [Concomitant]
     Active Substance: LEVOTHYROXINE SODIUM
     Indication: Hypothyroidism
  4. BISOPROLOL FUMARATE [Concomitant]
     Active Substance: BISOPROLOL FUMARATE
     Indication: Cardiac disorder

REACTIONS (4)
  - Corneal transplant [Unknown]
  - Maculopathy [Unknown]
  - Visual field defect [Unknown]
  - Eye disorder [Unknown]
